FAERS Safety Report 16377495 (Version 2)
Quarter: 2019Q2

REPORT INFORMATION
  Report Type: Spontaneous
  Country: US (occurrence: US)
  Receive Date: 20190531
  Receipt Date: 20190620
  Transmission Date: 20190711
  Serious: No
  Sender: FDA-Public Use
  Company Number: US-PFIZER INC-2019232476

PATIENT
  Age: 72 Year
  Sex: Female

DRUGS (2)
  1. IBRANCE [Suspect]
     Active Substance: PALBOCICLIB
     Indication: BREAST CANCER FEMALE
     Dosage: 100 MG, UNK
     Dates: start: 20190503
  2. FASLODEX [Suspect]
     Active Substance: FULVESTRANT
     Dosage: 2 DF, UNK (TWO FASLODEX INJECTIONS)
     Dates: start: 20190521

REACTIONS (4)
  - Pain [Unknown]
  - Fatigue [Unknown]
  - Neoplasm progression [Unknown]
  - Feeling abnormal [Unknown]

NARRATIVE: CASE EVENT DATE: 201905
